FAERS Safety Report 8016833-9 (Version None)
Quarter: 2012Q1

REPORT INFORMATION
  Report Type: 
  Country: None (occurrence: None)
  Receive Date: 20120102
  Receipt Date: 20111220
  Transmission Date: 20120608
  Serious: Yes (Hospitalization)
  Sender: FDA-Public Use
  Company Number: FR-NOVOPROD-341926

PATIENT

DRUGS (15)
  1. AZOPT [Concomitant]
     Dosage: UNK
  2. LOVENOX [Concomitant]
     Dosage: UNK
  3. REPAGLINIDE [Suspect]
     Indication: TYPE 2 DIABETES MELLITUS
     Dosage: 6 MG, QD
     Route: 048
     Dates: start: 20070101, end: 20111125
  4. VALSARTAN  AND HYDROCHLOROTHIAZIDE [Concomitant]
     Dosage: UNK
  5. XYZAL [Concomitant]
     Dosage: UNK
  6. LUMIGAN [Concomitant]
     Dosage: UNK
  7. ATORVASTATIN CALCIUM [Concomitant]
     Dosage: UNK
  8. FEXOFENADINE HCL [Concomitant]
     Dosage: UNK
  9. ASPIRIN [Concomitant]
     Dosage: UNK
  10. DOMPERIDONE [Concomitant]
     Dosage: UNK
  11. PROTELOS [Suspect]
     Dosage: ONE DOSE DAILY
     Route: 048
  12. METFORMIN HCL [Suspect]
     Dosage: 2 TAB, QD
     Route: 048
     Dates: start: 20080101, end: 20111125
  13. DILTIAZEM HCL [Concomitant]
     Dosage: UNK
  14. GLUCOPHAGE [Concomitant]
     Dosage: UNK
  15. NEXIUM [Concomitant]
     Dosage: UNK

REACTIONS (1)
  - PANCREATITIS [None]
